FAERS Safety Report 19050881 (Version 2)
Quarter: 2021Q4

REPORT INFORMATION
  Report Type: Spontaneous
  Country: GB (occurrence: GB)
  Receive Date: 20210324
  Receipt Date: 20211025
  Transmission Date: 20220303
  Serious: Yes (Life-Threatening, Other)
  Sender: FDA-Public Use
  Company Number: None

PATIENT
  Age: 76 Year
  Sex: Female

DRUGS (7)
  1. FENTANYL [Suspect]
     Active Substance: FENTANYL
     Indication: Induction of anaesthesia
     Dosage: UNK
     Route: 065
  2. FENTANYL [Suspect]
     Active Substance: FENTANYL
     Route: 065
  3. FENTANYL [Suspect]
     Active Substance: FENTANYL
  4. PROPOFOL [Suspect]
     Active Substance: PROPOFOL
     Indication: Induction of anaesthesia
     Dosage: UNK
     Route: 065
  5. VECURONIUM BROMIDE [Suspect]
     Active Substance: VECURONIUM BROMIDE
     Indication: Induction of anaesthesia
     Dosage: UNK
     Route: 065
  6. OCTREOTIDE [Concomitant]
     Active Substance: OCTREOTIDE
     Dosage: UNK, FOR 48 HOURS POSTOPERATIVELY
     Route: 042
  7. OCTREOTIDE [Concomitant]
     Active Substance: OCTREOTIDE
     Dosage: 1200 MICROGRAM DAILY; FOR 48 HOURS POSTOPERATIVELY, ALSO RECEIVED 50 MCG/H
     Route: 042

REACTIONS (4)
  - Carcinoid crisis [Recovered/Resolved]
  - Flushing [Recovered/Resolved]
  - Blood pressure decreased [Recovered/Resolved]
  - Hypotension [Recovered/Resolved]
